FAERS Safety Report 6972404-4 (Version None)
Quarter: 2010Q3

REPORT INFORMATION
  Report Type: 
  Country: None (occurrence: None)
  Receive Date: 20100909
  Receipt Date: 20100901
  Transmission Date: 20110219
  Serious: Yes (Hospitalization)
  Sender: FDA-Public Use
  Company Number: PK-ELI_LILLY_AND_COMPANY-PK201009000704

PATIENT
  Age: 52 Year
  Sex: Male

DRUGS (6)
  1. BYETTA [Suspect]
     Indication: DIABETES MELLITUS
     Dosage: 10 UG, UNK
     Dates: start: 20100706, end: 20100803
  2. DRUG USED IN DIABETES [Concomitant]
     Indication: DIABETES MELLITUS
     Dosage: 4 MG, 2/D
     Dates: start: 20100706
  3. GLUCOPHAGE [Concomitant]
     Indication: DIABETES MELLITUS
     Dosage: 500 MG, 3/D
  4. HUMULIN R [Concomitant]
     Indication: DIABETES MELLITUS
     Dosage: UNK, OTHER
     Dates: start: 20100803, end: 20100807
  5. HUMULIN 70/30 [Concomitant]
     Indication: DIABETES MELLITUS
     Dosage: 45 U, EACH MORNING
     Dates: start: 20100808
  6. HUMULIN 70/30 [Concomitant]
     Dosage: 35 U, EACH EVENING
     Dates: start: 20100808

REACTIONS (2)
  - DRUG INEFFECTIVE [None]
  - HYPERGLYCAEMIA [None]
